FAERS Safety Report 16734941 (Version 1)
Quarter: 2019Q3

REPORT INFORMATION
  Report Type: Spontaneous
  Country: US (occurrence: US)
  Receive Date: 20190823
  Receipt Date: 20190823
  Transmission Date: 20191005
  Serious: No
  Sender: FDA-Public Use
  Company Number: US-PFIZER INC-2019357928

PATIENT
  Age: 59 Year
  Sex: Female
  Weight: 58.97 kg

DRUGS (2)
  1. VFEND [Suspect]
     Active Substance: VORICONAZOLE
     Indication: ASPERGILLUS INFECTION
     Dosage: UNK UNK, 2X/DAY
     Route: 048
  2. VFEND [Suspect]
     Active Substance: VORICONAZOLE
     Dosage: 200 MG, 1X/DAY
     Route: 048
     Dates: start: 20190120

REACTIONS (1)
  - Bronchitis [Recovering/Resolving]

NARRATIVE: CASE EVENT DATE: 20190711
